FAERS Safety Report 11613551 (Version 2)
Quarter: 2016Q2

REPORT INFORMATION
  Report Type: Spontaneous
  Country: US (occurrence: US)
  Receive Date: 20151008
  Receipt Date: 20160519
  Transmission Date: 20160815
  Serious: Yes (Hospitalization, Other)
  Sender: FDA-Public Use
  Company Number: US-MDT-ADR-2015-01926

PATIENT
  Age: 45 Year
  Sex: Male

DRUGS (2)
  1. OPIATES [Suspect]
     Active Substance: UNSPECIFIED INGREDIENT
     Route: 048
  2. BACLOFEN. [Suspect]
     Active Substance: BACLOFEN
     Route: 037

REACTIONS (5)
  - Headache [Recovered/Resolved]
  - Musculoskeletal stiffness [Unknown]
  - Pain [Unknown]
  - Spinal cord injury [Unknown]
  - Vomiting [Unknown]

NARRATIVE: CASE EVENT DATE: 201509
